FAERS Safety Report 24000133 (Version 1)
Quarter: 2024Q2

REPORT INFORMATION
  Report Type: Spontaneous
  Country: RU (occurrence: RU)
  Receive Date: 20240621
  Receipt Date: 20240621
  Transmission Date: 20240716
  Serious: Yes (Hospitalization)
  Sender: FDA-Public Use
  Company Number: RU-PIERREL S.P.A.-2024PIR00030

PATIENT
  Age: 39 Year
  Sex: Female

DRUGS (2)
  1. ORABLOC [Suspect]
     Active Substance: ARTICAINE HYDROCHLORIDE\EPINEPHRINE BITARTRATE
     Indication: Anaesthesia oral
     Dosage: 3.6 ML, ONCE
     Route: 050
     Dates: start: 20240604, end: 20240604
  2. ORABLOC [Suspect]
     Active Substance: ARTICAINE HYDROCHLORIDE\EPINEPHRINE BITARTRATE
     Indication: Tooth extraction

REACTIONS (1)
  - Atrioventricular block [Unknown]

NARRATIVE: CASE EVENT DATE: 20240604
